FAERS Safety Report 11911806 (Version 2)
Quarter: 2016Q2

REPORT INFORMATION
  Report Type: Spontaneous
  Country: US (occurrence: US)
  Receive Date: 20160112
  Receipt Date: 20160525
  Transmission Date: 20160815
  Serious: Yes (Other)
  Sender: FDA-Public Use
  Company Number: US-BAYER-2016-005075

PATIENT
  Sex: Female

DRUGS (1)
  1. SKYLA [Suspect]
     Active Substance: LEVONORGESTREL
     Dosage: 14 MCG/24HR, CONT
     Route: 015
     Dates: start: 201512, end: 201604

REACTIONS (6)
  - Pregnancy with contraceptive device [Not Recovered/Not Resolved]
  - Procedural pain [Recovered/Resolved]
  - Menorrhagia [None]
  - Device expulsion [Recovered/Resolved]
  - Drug ineffective [None]
  - Patient-device incompatibility [None]

NARRATIVE: CASE EVENT DATE: 201512
